FAERS Safety Report 8879037 (Version 1)
Quarter: 2012Q4

REPORT INFORMATION
  Report Type: Spontaneous
  Country: US (occurrence: None)
  Receive Date: 20121031
  Receipt Date: 20121031
  Transmission Date: 20130627
  Serious: Yes (Hospitalization)
  Sender: FDA-Public Use
  Company Number: None

PATIENT
  Age: 33 Year
  Sex: Female

DRUGS (1)
  1. MIRENA IUD [Suspect]
     Indication: CONTRACEPTION

REACTIONS (5)
  - Fallopian tube abscess [None]
  - Pelvic inflammatory disease [None]
  - Fallopian tube disorder [None]
  - Fallopian tube operation [None]
  - Infertility female [None]
